FAERS Safety Report 8958425 (Version 1)
Quarter: 2012Q4

REPORT INFORMATION
  Report Type: Spontaneous
  Country: US (occurrence: None)
  Receive Date: 20121205
  Receipt Date: 20121205
  Transmission Date: 20130627
  Serious: Yes (Death)
  Sender: FDA-Public Use
  Company Number: None

PATIENT
  Age: 39 Year
  Sex: Female

DRUGS (9)
  1. LETAIRIS [Suspect]
     Indication: PULMONARY HYPERTENSION
     Dates: start: 201203
  2. LETAIRIS [Suspect]
     Indication: PULMONARY HYPERTENSION
     Dates: start: 201212
  3. MYCOPHENOLATE MOFETIL [Concomitant]
  4. MAGNESIUM OXIDE [Concomitant]
  5. ZOFRAN [Concomitant]
  6. PANTOPRAZOLE [Concomitant]
  7. SPIRONOLACTONE [Concomitant]
  8. IRON [Concomitant]
  9. LETAIRIS [Suspect]
     Indication: PULMONARY HYPERTENSION
     Dosage: 10mg daily orally
     Route: 048
     Dates: start: 201108

REACTIONS (3)
  - Ascites [None]
  - Pleural effusion [None]
  - Hypoxia [None]
